FAERS Safety Report 8319303-3 (Version None)
Quarter: 2012Q2

REPORT INFORMATION
  Report Type: 
  Country: None (occurrence: None)
  Receive Date: 20120427
  Receipt Date: 20120420
  Transmission Date: 20120825
  Serious: Yes (Hospitalization)
  Sender: FDA-Public Use
  Company Number: BR-ASTRAZENECA-2012SE20515

PATIENT
  Age: 80 Year
  Sex: Male
  Weight: 72 kg

DRUGS (3)
  1. BRILINTA [Suspect]
     Indication: RENAL EMBOLISM
     Route: 048
     Dates: start: 20120326
  2. NEXIUM [Suspect]
     Route: 048
     Dates: start: 20120201
  3. DACIL [Concomitant]
     Route: 048

REACTIONS (2)
  - OFF LABEL USE [None]
  - RENAL EMBOLISM [None]
